FAERS Safety Report 9364805 (Version 1)
Quarter: 2013Q2

REPORT INFORMATION
  Report Type: Spontaneous
  Country: CA (occurrence: CA)
  Receive Date: 20130624
  Receipt Date: 20130624
  Transmission Date: 20140414
  Serious: Yes (Hospitalization)
  Sender: FDA-Public Use
  Company Number: CA-ELI_LILLY_AND_COMPANY-CA201306004151

PATIENT
  Age: 75 Year
  Sex: Female

DRUGS (10)
  1. FORTEO [Suspect]
     Indication: OSTEOPOROSIS
     Dosage: 20 UG, QD
     Route: 058
     Dates: start: 20130311, end: 20130312
  2. CALCIUM [Concomitant]
  3. VITAMIN D [Concomitant]
  4. OMEPRAZOLE [Concomitant]
  5. METHOTREXATE [Concomitant]
  6. UNIPHYL [Concomitant]
  7. EURO FOLIC [Concomitant]
  8. CYCLOBENZAPRINE [Concomitant]
  9. FLOVENT [Concomitant]
  10. PREDNISONE [Concomitant]

REACTIONS (3)
  - Cholecystitis infective [Not Recovered/Not Resolved]
  - Chest pain [Not Recovered/Not Resolved]
  - Oxygen saturation decreased [Not Recovered/Not Resolved]
